FAERS Safety Report 26208711 (Version 1)
Quarter: 2025Q4

REPORT INFORMATION
  Report Type: Spontaneous
  Country: US (occurrence: US)
  Receive Date: 20251229
  Receipt Date: 20251229
  Transmission Date: 20260118
  Serious: No
  Sender: GALPHARM INTERNATIONAL
  Company Number: US-PERRIGO-25US012048

PATIENT
  Sex: Female

DRUGS (1)
  1. TIOCONAZOLE [Suspect]
     Active Substance: TIOCONAZOLE
     Indication: Product used for unknown indication
     Dosage: 300 MG, SINGLE
     Route: 067
     Dates: start: 20251004, end: 20251004

REACTIONS (4)
  - Vulvovaginal pain [Unknown]
  - Vulvovaginal burning sensation [Unknown]
  - Drug hypersensitivity [Unknown]
  - Vaginal haemorrhage [Unknown]

NARRATIVE: CASE EVENT DATE: 20251004
